FAERS Safety Report 9521216 (Version 1)
Quarter: 2013Q1

REPORT INFORMATION
  Report Type: Spontaneous
  Country: US (occurrence: None)
  Receive Date: 20130305
  Receipt Date: 20130305
  Transmission Date: 20140127
  Serious: Yes (Hospitalization, Other)
  Sender: FDA-Public Use
  Company Number: 163-21880-12093012

PATIENT
  Age: 58 Year
  Sex: Male
  Weight: 99.88 kg

DRUGS (9)
  1. REVLIMID (LENALIDOMIDE) (25 MILLIGRAM, CAPSULES) [Suspect]
     Indication: PLASMA CELL MYELOMA
     Dosage: 25 MG, 21 IN 28 D, PO
     Route: 048
     Dates: start: 20120611
  2. DULOXETINE (DULOXETINE) (UNKNOWN) [Concomitant]
  3. DEXAMETHASONE (DEXAMETHASONE) (UNKNOWN) [Concomitant]
  4. DIAZEPAM (DIAZEPAM) (UNKNOWN) (DIAZEPAM) [Concomitant]
  5. GABAPENTIN (GABAPENTIN) (UNKNOWN) (GABAPENTIN) [Concomitant]
  6. MORPHINE (MORPHINE) (UNKNOWN) (MORPHINE) [Concomitant]
  7. WARFARIN (WARFARIN) (UNKNOWN) [Concomitant]
  8. ANTIBIOTICS (ANTIBIOTICS) (UNKNOWN) [Concomitant]
  9. DALTEPARIN (DALTEPARIN) (UNKNOWN) [Concomitant]

REACTIONS (3)
  - Thrombosis [None]
  - Limb injury [None]
  - Road traffic accident [None]
